FAERS Safety Report 4497892-7 (Version None)
Quarter: 2004Q4

REPORT INFORMATION
  Report Type: 
  Country: None (occurrence: None)
  Receive Date: 20041110
  Receipt Date: 20041103
  Transmission Date: 20050328
  Serious: Yes (Other)
  Sender: FDA-Public Use
  Company Number: PHEH2004US11860

PATIENT
  Age: 70 Year
  Sex: Male
  Weight: 57 kg

DRUGS (2)
  1. DIOVAN [Suspect]
     Dosage: 40 MG, QD
     Route: 048
     Dates: end: 20041026
  2. ^PEKISONE^ [Concomitant]

REACTIONS (4)
  - BLOOD PRESSURE DECREASED [None]
  - DIZZINESS [None]
  - LETHARGY [None]
  - ROAD TRAFFIC ACCIDENT [None]
